FAERS Safety Report 9753577 (Version 1)
Quarter: 2013Q4

REPORT INFORMATION
  Report Type: Spontaneous
  Country: GB (occurrence: GB)
  Receive Date: 20131213
  Receipt Date: 20131213
  Transmission Date: 20140711
  Serious: Yes (Other)
  Sender: FDA-Public Use
  Company Number: GB-WATSON-2013-22739

PATIENT
  Age: 22 Year
  Sex: Male

DRUGS (1)
  1. CITALOPRAM HYDROBROMIDE (UNKNOWN) [Suspect]
     Indication: AFFECTIVE DISORDER
     Dosage: 20 MG, UNKNOWN
     Route: 065

REACTIONS (3)
  - Cluster headache [Unknown]
  - Vision blurred [Recovered/Resolved]
  - Chills [Recovering/Resolving]
